FAERS Safety Report 6518274-X (Version None)
Quarter: 2009Q4

REPORT INFORMATION
  Report Type: 
  Country: None (occurrence: None)
  Receive Date: 20091223
  Receipt Date: 20091223
  Transmission Date: 20100525
  Serious: Yes (Hospitalization)
  Sender: FDA-Public Use
  Company Number: None

PATIENT
  Age: 42 Year
  Sex: Male
  Weight: 116 kg

DRUGS (1)
  1. FLEBOGAMMA 5% [Suspect]
     Indication: IMMUNODEFICIENCY COMMON VARIABLE
     Dosage: 60 GRAMS IV DRIP
     Route: 041
     Dates: start: 20091211, end: 20091211

REACTIONS (3)
  - CHEST PAIN [None]
  - MYOCARDIAL INFARCTION [None]
  - PRODUCT FORMULATION ISSUE [None]
